FAERS Safety Report 7789662-9 (Version None)
Quarter: 2011Q3

REPORT INFORMATION
  Report Type: 
  Country: None (occurrence: None)
  Receive Date: 20110930
  Receipt Date: 20110725
  Transmission Date: 20111222
  Serious: No
  Sender: FDA-Public Use
  Company Number: US-ASTRAZENECA-2011SE44796

PATIENT
  Age: 55 Year
  Sex: Female

DRUGS (2)
  1. GLUCOSAMINE [Concomitant]
  2. ANASTROZOLE [Suspect]
     Route: 048

REACTIONS (4)
  - ARTHROPATHY [None]
  - MOBILITY DECREASED [None]
  - DYSPNOEA [None]
  - MUSCULOSKELETAL DISCOMFORT [None]
